FAERS Safety Report 12415710 (Version 1)
Quarter: 2016Q2

REPORT INFORMATION
  Report Type: Report from Study
  Country: KP (occurrence: KR)
  Receive Date: 20160530
  Receipt Date: 20160530
  Transmission Date: 20160815
  Serious: Yes (Death)
  Sender: FDA-Public Use
  Company Number: KR-ACCORD-040877

PATIENT
  Age: 38 Year
  Sex: Female

DRUGS (4)
  1. RANITIDINE. [Concomitant]
     Active Substance: RANITIDINE
     Route: 042
  2. DEXAMETHASONE. [Concomitant]
     Active Substance: DEXAMETHASONE
  3. PACLITAXEL/PACLITAXEL LIPOSOME [Suspect]
     Active Substance: PACLITAXEL
     Indication: ANGIOSARCOMA METASTATIC
     Route: 042
  4. CHLORPHENAMINE [Concomitant]
     Active Substance: CHLORPHENIRAMINE MALEATE

REACTIONS (5)
  - Diarrhoea [None]
  - Performance status decreased [None]
  - Pulmonary embolism [Fatal]
  - Febrile neutropenia [None]
  - Pyrexia [None]
